FAERS Safety Report 21260742 (Version 1)
Quarter: 2022Q3

REPORT INFORMATION
  Report Type: Spontaneous
  Country: US (occurrence: US)
  Receive Date: 20220826
  Receipt Date: 20220826
  Transmission Date: 20221027
  Serious: No
  Sender: FDA-Public Use
  Company Number: US-BANNER LIFE SCIENCES, LLC-2022BAN000186

PATIENT

DRUGS (3)
  1. BAFIERTAM [Suspect]
     Active Substance: MONOMETHYL FUMARATE
     Indication: Multiple sclerosis
     Dosage: 190 MILLIGRAM, BID
     Route: 048
     Dates: start: 20220214
  2. BAFIERTAM [Suspect]
     Active Substance: MONOMETHYL FUMARATE
     Dosage: UNK UNK, BID
     Route: 048
     Dates: start: 20220301
  3. LOSARTAN [Concomitant]
     Active Substance: LOSARTAN
     Indication: Product used for unknown indication

REACTIONS (3)
  - Pruritus [Unknown]
  - Flushing [Unknown]
  - Erythema [Unknown]

NARRATIVE: CASE EVENT DATE: 20220701
